FAERS Safety Report 6642477-7 (Version None)
Quarter: 2010Q1

REPORT INFORMATION
  Report Type: 
  Country: None (occurrence: None)
  Receive Date: 20100319
  Receipt Date: 20100309
  Transmission Date: 20100710
  Serious: Yes (Hospitalization)
  Sender: FDA-Public Use
  Company Number: JP-ELI_LILLY_AND_COMPANY-JP201003004613

PATIENT
  Age: 67 Year
  Sex: Female
  Weight: 44.4 kg

DRUGS (14)
  1. TADALAFIL [Suspect]
     Indication: PULMONARY ARTERIAL HYPERTENSION
     Dosage: 40 MG, DAILY (1/D)
     Route: 048
     Dates: start: 20100113, end: 20100123
  2. JUVELA N [Concomitant]
     Indication: SCLERODERMA
     Dosage: 300 MG, DAILY (1/D)
     Route: 048
  3. ASPIRIN [Concomitant]
     Indication: PROPHYLAXIS
     Dosage: 100 MG, DAILY (1/D)
     Route: 048
  4. TRACLEER [Concomitant]
     Indication: PULMONARY ARTERIAL HYPERTENSION
     Dosage: 187.5 MG, DAILY (1/D)
     Route: 048
  5. ALINAMIN F [Concomitant]
     Indication: PROPHYLAXIS
     Dosage: 75 MG, DAILY (1/D)
     Route: 048
  6. METHYCOBAL [Concomitant]
     Indication: SCLERODERMA
     Dosage: 1500 UG, DAILY (1/D)
     Route: 048
  7. ONEALFA [Concomitant]
     Indication: PROPHYLAXIS
     Dosage: 0.5 UG, DAILY (1/D)
     Route: 048
  8. MAGMITT [Concomitant]
     Indication: PROPHYLAXIS
     Dosage: 500 MG, DAILY (1/D)
     Route: 048
  9. LAC B [Concomitant]
     Indication: PROPHYLAXIS
     Dosage: 3 G, DAILY (1/D)
     Route: 048
  10. ACINON [Concomitant]
     Indication: PROPHYLAXIS
     Dosage: 300 MG, DAILY (1/D)
     Route: 048
  11. LASIX [Concomitant]
     Indication: PROPHYLAXIS
     Dosage: 10 MG, DAILY (1/D)
     Route: 048
  12. BERAPROST SODIUM [Concomitant]
     Indication: PULMONARY ARTERIAL HYPERTENSION
     Dosage: 120 UG, DAILY (1/D)
     Route: 048
  13. HIRUDOID /00723701/ [Concomitant]
     Indication: SCLERODERMA
     Route: 048
  14. PREDONINE [Concomitant]
     Indication: SCLERODERMA
     Dosage: 7.5 MG, DAILY (1/D)
     Route: 048

REACTIONS (1)
  - DYSPNOEA EXERTIONAL [None]
